FAERS Safety Report 8525480-1 (Version None)
Quarter: 2012Q3

REPORT INFORMATION
  Report Type: 
  Country: None (occurrence: None)
  Receive Date: 20120720
  Receipt Date: 20120713
  Transmission Date: 20120928
  Serious: Yes (Hospitalization)
  Sender: FDA-Public Use
  Company Number: CA-JNJFOC-20120707214

PATIENT
  Sex: Male
  Weight: 78.93 kg

DRUGS (1)
  1. REMICADE [Suspect]
     Indication: CROHN'S DISEASE
     Route: 042
     Dates: start: 20090521

REACTIONS (2)
  - BILE DUCT OBSTRUCTION [None]
  - PORTAL VEIN THROMBOSIS [None]
